FAERS Safety Report 19152629 (Version 1)
Quarter: 2021Q2

REPORT INFORMATION
  Report Type: Spontaneous
  Country: US (occurrence: US)
  Receive Date: 20210416
  Receipt Date: 20210416
  Transmission Date: 20210717
  Serious: No
  Sender: FDA-Public Use
  Company Number: None

PATIENT
  Age: 73 Year
  Sex: Female
  Weight: 60.75 kg

DRUGS (8)
  1. HYDRATING EYE DROPS [Concomitant]
  2. ESTRADIOL 0.01% CREAM [Suspect]
     Active Substance: ESTRADIOL
     Indication: GENITOURINARY TRACT INFECTION
     Dosage: ?          QUANTITY:2 2 GRAMS CREAM;?
     Route: 067
  3. VITAMIN C [Concomitant]
     Active Substance: ASCORBIC ACID
  4. TYLENOL [Concomitant]
     Active Substance: ACETAMINOPHEN
  5. CLARITIN [Concomitant]
     Active Substance: LORATADINE
  6. MELATONIN [Concomitant]
     Active Substance: MELATONIN
  7. TRAZODONE [Concomitant]
     Active Substance: TRAZODONE HYDROCHLORIDE
  8. MULTIVITAMIN [Concomitant]
     Active Substance: VITAMINS

REACTIONS (3)
  - Incorrect dose administered by device [None]
  - Device delivery system issue [None]
  - Product packaging quantity issue [None]

NARRATIVE: CASE EVENT DATE: 20210416
